FAERS Safety Report 19952855 (Version 3)
Quarter: 2022Q1

REPORT INFORMATION
  Report Type: Spontaneous
  Country: US (occurrence: US)
  Receive Date: 20211014
  Receipt Date: 20220117
  Transmission Date: 20220423
  Serious: Yes (Hospitalization, Other)
  Sender: FDA-Public Use
  Company Number: US-BRISTOL-MYERS SQUIBB COMPANY-BMS-2021-102491

PATIENT
  Age: 51 Year
  Sex: Male
  Weight: 76.553 kg

DRUGS (2)
  1. OPDIVO [Suspect]
     Active Substance: NIVOLUMAB
     Indication: Renal cell carcinoma stage IV
     Dosage: 240 MILLIGRAM, Q3WK,THREE CYCLES
     Route: 042
     Dates: start: 20210129, end: 20210312
  2. YERVOY [Suspect]
     Active Substance: IPILIMUMAB
     Indication: Renal cell carcinoma stage IV
     Dosage: 228 MILLIGRAM, Q3WK,THREE CYCLES (3 MG/KG)
     Route: 042
     Dates: start: 20210129, end: 20210312

REACTIONS (4)
  - Nephritis [Recovered/Resolved]
  - Hepatitis [Recovered/Resolved]
  - Aplastic anaemia [Not Recovered/Not Resolved]
  - Prescribed overdose [Unknown]

NARRATIVE: CASE EVENT DATE: 20210408
